FAERS Safety Report 24528276 (Version 3)
Quarter: 2024Q4

REPORT INFORMATION
  Report Type: Spontaneous
  Country: US (occurrence: US)
  Receive Date: 20241021
  Receipt Date: 20241204
  Transmission Date: 20250114
  Serious: Yes (Other)
  Sender: PFIZER
  Company Number: US-PFIZER INC-PV202400135003

PATIENT
  Sex: Female

DRUGS (2)
  1. DEPO-PROVERA [Suspect]
     Active Substance: MEDROXYPROGESTERONE ACETATE
     Indication: Contraception
     Dosage: 150 MG, EVERY 3 MONTHS
     Route: 030
     Dates: start: 199501, end: 200704
  2. DEPO-PROVERA [Suspect]
     Active Substance: MEDROXYPROGESTERONE ACETATE
     Dosage: 150 MG, EVERY 3 MONTHS
     Route: 030
     Dates: start: 2007, end: 20181002

REACTIONS (18)
  - Meningioma [Unknown]
  - Spinal fracture [Unknown]
  - Skin laceration [Unknown]
  - Contusion [Unknown]
  - Fall [Unknown]
  - Dizziness [Unknown]
  - Emotional distress [Unknown]
  - Bone density decreased [Unknown]
  - Photophobia [Unknown]
  - Anal incontinence [Unknown]
  - Incontinence [Unknown]
  - Frustration tolerance decreased [Unknown]
  - Irritability [Unknown]
  - Depression [Unknown]
  - Confusional state [Unknown]
  - Apathy [Unknown]
  - Fatigue [Unknown]
  - Hypersomnia [Unknown]

NARRATIVE: CASE EVENT DATE: 20081201
